FAERS Safety Report 22375177 (Version 3)
Quarter: 2023Q2

REPORT INFORMATION
  Report Type: Report from Study
  Country: CA (occurrence: CA)
  Receive Date: 20230527
  Receipt Date: 20230630
  Transmission Date: 20230722
  Serious: Yes (Other)
  Sender: FDA-Public Use
  Company Number: CA-002147023-NVSC2023CA050669

PATIENT
  Age: 46 Year
  Sex: Female

DRUGS (5)
  1. COSENTYX [Suspect]
     Active Substance: SECUKINUMAB
     Indication: Psoriatic arthropathy
     Dosage: 300 MG, QW, WEEKS 0, 1, 2, 3, AND 4
     Route: 058
     Dates: start: 20230220
  2. COSENTYX [Suspect]
     Active Substance: SECUKINUMAB
     Dosage: 150 MG, QW
     Route: 058
  3. COSENTYX [Suspect]
     Active Substance: SECUKINUMAB
     Dosage: 300 MG, QMO
     Route: 058
  4. CORTISONE [Concomitant]
     Active Substance: CORTISONE
     Indication: Back disorder
     Dosage: UNK
     Route: 065
  5. CORTISONE [Concomitant]
     Active Substance: CORTISONE
     Indication: Musculoskeletal discomfort

REACTIONS (8)
  - Uterine haemorrhage [Not Recovered/Not Resolved]
  - Hypokinesia [Unknown]
  - Vomiting [Unknown]
  - Dysstasia [Unknown]
  - Gait disturbance [Unknown]
  - Diarrhoea [Unknown]
  - Product dose omission in error [Unknown]
  - Incorrect dose administered [Unknown]

NARRATIVE: CASE EVENT DATE: 20230220
